FAERS Safety Report 9809418 (Version 1)
Quarter: 2014Q1

REPORT INFORMATION
  Report Type: Spontaneous
  Country: GB (occurrence: GB)
  Receive Date: 20140110
  Receipt Date: 20140110
  Transmission Date: 20141002
  Serious: Yes (Other)
  Sender: FDA-Public Use
  Company Number: PHHY2014GB001795

PATIENT
  Age: 65 Year
  Sex: Female

DRUGS (2)
  1. LISINOPRIL [Suspect]
     Indication: HYPERTENSION
     Dosage: 5 MG, UNK
     Route: 048
     Dates: start: 20130401, end: 20130924
  2. PARACETAMOL [Concomitant]

REACTIONS (4)
  - Dysphonia [Recovering/Resolving]
  - Sensation of foreign body [Recovered/Resolved]
  - Cough [Recovered/Resolved with Sequelae]
  - Sleep disorder [Unknown]
